FAERS Safety Report 22940961 (Version 3)
Quarter: 2023Q4

REPORT INFORMATION
  Report Type: Spontaneous
  Country: US (occurrence: US)
  Receive Date: 20230913
  Receipt Date: 20231020
  Transmission Date: 20240109
  Serious: No
  Sender: FDA-Public Use
  Company Number: US-Calliditas-2023CAL01179

PATIENT
  Age: 63 Year
  Sex: Female

DRUGS (1)
  1. TARPEYO [Suspect]
     Active Substance: BUDESONIDE
     Indication: Haematuria
     Dosage: 16 MG (4 CAPSULES) ONCE DAILY
     Route: 048
     Dates: start: 20230830, end: 20231013

REACTIONS (8)
  - Hot flush [Unknown]
  - Off label use [Unknown]
  - Insomnia [Recovering/Resolving]
  - Blood pressure increased [Not Recovered/Not Resolved]
  - Cortisol increased [Unknown]
  - Fat tissue increased [Unknown]
  - Stress [Unknown]
  - Abdominal distension [Unknown]
